FAERS Safety Report 6420978-4 (Version None)
Quarter: 2009Q4

REPORT INFORMATION
  Report Type: 
  Country: None (occurrence: None)
  Receive Date: 20091028
  Receipt Date: 20091013
  Transmission Date: 20100525
  Serious: Yes (Death, Hospitalization)
  Sender: FDA-Public Use
  Company Number: 8053372

PATIENT
  Age: 61 Year
  Sex: Female

DRUGS (2)
  1. HYDROCODONE BITARTRATE AND ACETAMINOPHEN [Suspect]
     Indication: PAIN
     Dosage: PRN PO
     Route: 048
  2. LOPERAMIDE HYDROCHLORIDE [Suspect]
     Indication: POST PROCEDURAL DIARRHOEA
     Dosage: 4 MG 3/D PO
     Route: 048

REACTIONS (10)
  - DIARRHOEA [None]
  - DISSEMINATED INTRAVASCULAR COAGULATION [None]
  - HAEMODIALYSIS [None]
  - HAEMORRHAGIC ASCITES [None]
  - MENTAL STATUS CHANGES [None]
  - PSEUDOMEMBRANOUS COLITIS [None]
  - PSEUDOMONAS INFECTION [None]
  - RENAL FAILURE ACUTE [None]
  - SEPTIC SHOCK [None]
  - URINE OUTPUT DECREASED [None]
